FAERS Safety Report 11812417 (Version 7)
Quarter: 2016Q4

REPORT INFORMATION
  Report Type: Report from Study
  Country: US (occurrence: US)
  Receive Date: 20151208
  Receipt Date: 20161101
  Transmission Date: 20170206
  Serious: Yes (Other)
  Sender: FDA-Public Use
  Company Number: US-B.I. PHARMACEUTICALS,INC./RIDGEFIELD-2015-BI-67888BP

PATIENT
  Sex: Female

DRUGS (2)
  1. OFEV [Suspect]
     Active Substance: NINTEDANIB
     Route: 048
  2. OFEV [Suspect]
     Active Substance: NINTEDANIB
     Indication: IDIOPATHIC PULMONARY FIBROSIS
     Route: 048
     Dates: start: 20150930

REACTIONS (10)
  - Diarrhoea [Unknown]
  - Functional gastrointestinal disorder [Unknown]
  - Abdominal pain upper [Unknown]
  - Skin cancer [Unknown]
  - Productive cough [Unknown]
  - Dyspnoea [Unknown]
  - Cough [Unknown]
  - Chills [Unknown]
  - Bronchitis [Unknown]
  - Dizziness [Unknown]
